FAERS Safety Report 4283694-3 (Version None)
Quarter: 2004Q1

REPORT INFORMATION
  Report Type: 
  Country: None (occurrence: None)
  Receive Date: 20040115
  Receipt Date: 20030228
  Transmission Date: 20041129
  Serious: Yes (Death)
  Sender: FDA-Public Use
  Company Number: NSADSS2003009571

PATIENT
  Age: 79 Year
  Sex: Male
  Weight: 82.5547 kg

DRUGS (15)
  1. DOXIL [Suspect]
     Indication: MULTIPLE MYELOMA
     Dosage: 80 MG; INTRAVENOUS DRIP
     Route: 041
     Dates: start: 20021114, end: 20021211
  2. PROCIT (ERYTHROPOIETIN) UNSPECIFIED [Suspect]
     Indication: ANAEMIA
     Dosage: 40000 IU, 1 IN 1 WEEK; SUBCUTANEOUS
     Route: 058
     Dates: start: 20021101
  3. PERCOCET [Concomitant]
  4. DECADRON [Concomitant]
  5. BACTRIM [Concomitant]
  6. PAXIL [Concomitant]
  7. DURAGESIC [Concomitant]
  8. PRILOSEC [Concomitant]
  9. METOPROLOL [Concomitant]
  10. MULTIPLE VITAMIN (MULTIVITAMINS) [Concomitant]
  11. COMBIVENT [Concomitant]
  12. IRON [Concomitant]
  13. LACTULOSE [Concomitant]
  14. MYSOLINE [Concomitant]
  15. LOVENOX [Concomitant]

REACTIONS (2)
  - CARDIAC ARREST [None]
  - CONDITION AGGRAVATED [None]
